FAERS Safety Report 26070343 (Version 1)
Quarter: 2025Q4

REPORT INFORMATION
  Report Type: Spontaneous
  Country: GB (occurrence: GB)
  Receive Date: 20251120
  Receipt Date: 20251120
  Transmission Date: 20260117
  Serious: Yes (Other)
  Sender: PFIZER
  Company Number: None

PATIENT
  Age: 50 Year
  Sex: Female
  Weight: 60 kg

DRUGS (1)
  1. CABERGOLINE [Suspect]
     Active Substance: CABERGOLINE
     Indication: Prolactin-producing pituitary tumour
     Dosage: UNK
     Dates: end: 202509

REACTIONS (2)
  - Compulsive shopping [Not Recovered/Not Resolved]
  - Off label use [Unknown]
